FAERS Safety Report 4878664-8 (Version None)
Quarter: 2006Q1

REPORT INFORMATION
  Report Type: 
  Country: None (occurrence: None)
  Receive Date: 20060110
  Receipt Date: 20060104
  Transmission Date: 20060701
  Serious: Yes (Death)
  Sender: FDA-Public Use
  Company Number: 220272

PATIENT
  Age: 57 Year
  Sex: Male
  Weight: 77.2 kg

DRUGS (3)
  1. EFALIZUMAB(EFALIZUMAB) PWDR + SOLVENT, INJECTION SOLN, 125MG [Suspect]
     Indication: PSORIASIS
     Dosage: 1 MG/KG, SUBCUTANEOUS; SEE IMAGE
     Route: 058
     Dates: start: 20031208, end: 20040106
  2. EFALIZUMAB(EFALIZUMAB) PWDR + SOLVENT, INJECTION SOLN, 125MG [Suspect]
     Indication: PSORIASIS
     Dosage: 1 MG/KG, SUBCUTANEOUS; SEE IMAGE
     Route: 058
     Dates: end: 20051129
  3. INSULIN [Concomitant]

REACTIONS (15)
  - ABSCESS NECK [None]
  - ANAEMIA [None]
  - BACTERAEMIA [None]
  - BLOOD GLUCOSE INCREASED [None]
  - BLOOD PRESSURE SYSTOLIC INCREASED [None]
  - CARDIAC ARREST [None]
  - CARDIAC MURMUR [None]
  - DIABETIC KETOACIDOSIS [None]
  - DIARRHOEA [None]
  - NEPHROTIC SYNDROME [None]
  - PNEUMONIA BACTERIAL [None]
  - PULMONARY OEDEMA [None]
  - SCROTAL OEDEMA [None]
  - STAPHYLOCOCCAL INFECTION [None]
  - SUBCUTANEOUS ABSCESS [None]
